FAERS Safety Report 12889443 (Version 2)
Quarter: 2016Q4

REPORT INFORMATION
  Report Type: Report from Study
  Country: IT (occurrence: IT)
  Receive Date: 20161027
  Receipt Date: 20161111
  Transmission Date: 20170207
  Serious: Yes (Death, Other)
  Sender: FDA-Public Use
  Company Number: IT-UCBSA-2016041211

PATIENT

DRUGS (2)
  1. LACOSAMIDE. [Suspect]
     Active Substance: LACOSAMIDE
     Indication: STATUS EPILEPTICUS
     Dosage: 200 MG LOADING DOSE
     Route: 042
  2. LACOSAMIDE. [Suspect]
     Active Substance: LACOSAMIDE
     Indication: OFF LABEL USE
     Dosage: 200 MG, DAILY
     Route: 042

REACTIONS (3)
  - Death [Fatal]
  - Off label use [Unknown]
  - Drug ineffective for unapproved indication [Unknown]
